FAERS Safety Report 11668892 (Version 1)
Quarter: 2015Q4

REPORT INFORMATION
  Report Type: Spontaneous
  Country: US (occurrence: US)
  Receive Date: 20151027
  Receipt Date: 20151027
  Transmission Date: 20160304
  Serious: No
  Sender: FDA-Public Use
  Company Number: US-PFIZER INC-2015357085

PATIENT
  Sex: Male

DRUGS (2)
  1. LYRICA [Suspect]
     Active Substance: PREGABALIN
     Dosage: 75 MG, UNK (ONE IN THE MORNING AND TWO IN THE EVENING)
  2. LYRICA [Suspect]
     Active Substance: PREGABALIN
     Indication: COMPLEX REGIONAL PAIN SYNDROME
     Dosage: 25 MG, 2X/DAY

REACTIONS (4)
  - Vision blurred [Unknown]
  - Drug ineffective for unapproved indication [Unknown]
  - Dizziness [Unknown]
  - Nausea [Unknown]
